FAERS Safety Report 4985740-8 (Version None)
Quarter: 2006Q2

REPORT INFORMATION
  Report Type: 
  Country: None (occurrence: None)
  Receive Date: 20060421
  Receipt Date: 20060407
  Transmission Date: 20061013
  Serious: Yes (Life-Threatening, Hospitalization)
  Sender: FDA-Public Use
  Company Number: AU-2006-008545

PATIENT
  Age: 67 Year
  Sex: Female

DRUGS (2)
  1. ULTRAVIST 370 [Suspect]
     Indication: COMPUTERISED TOMOGRAM ABDOMEN
     Dosage: 75 MI, 1 DOSE, INTRAVENOUS
     Route: 042
     Dates: start: 20060328, end: 20060328
  2. ANTIBIOTIC EYE DROPS DROP [Concomitant]

REACTIONS (3)
  - DRY THROAT [None]
  - SNEEZING [None]
  - SWELLING FACE [None]
